FAERS Safety Report 25340245 (Version 1)
Quarter: 2025Q2

REPORT INFORMATION
  Report Type: Spontaneous
  Country: US (occurrence: None)
  Receive Date: 20250521
  Receipt Date: 20250521
  Transmission Date: 20250717
  Serious: No
  Sender: SUPERNUS PHARMACEUTICALS, INC.
  Company Number: US-SUPERNUS Pharmaceuticals, Inc.-SUP202405-001956

PATIENT
  Age: 19 Year
  Sex: Female

DRUGS (3)
  1. QELBREE [Suspect]
     Active Substance: VILOXAZINE HYDROCHLORIDE
     Indication: Product used for unknown indication
  2. QELBREE [Suspect]
     Active Substance: VILOXAZINE HYDROCHLORIDE
  3. WELLBUTRIN [Concomitant]
     Active Substance: BUPROPION HYDROCHLORIDE
     Dosage: HAD BEEN TAKING FOR YEARS

REACTIONS (3)
  - Anxiety [Unknown]
  - Tachycardia [Unknown]
  - Panic attack [Unknown]
